FAERS Safety Report 11561988 (Version 1)
Quarter: 2015Q3

REPORT INFORMATION
  Report Type: Spontaneous
  Country: US (occurrence: US)
  Receive Date: 20150916
  Receipt Date: 20150916
  Transmission Date: 20151125
  Serious: No
  Sender: FDA-Public Use
  Company Number: US-ELI_LILLY_AND_COMPANY-US200811003852

PATIENT
  Age: 74 Year
  Sex: Female
  Weight: 33.11 kg

DRUGS (1)
  1. FORTEO [Suspect]
     Active Substance: TERIPARATIDE
     Dosage: UNK, UNK
     Dates: start: 200804

REACTIONS (8)
  - Injection site bruising [Recovering/Resolving]
  - Injection site pain [Not Recovered/Not Resolved]
  - Injection site haemorrhage [Not Recovered/Not Resolved]
  - Ill-defined disorder [Not Recovered/Not Resolved]
  - Weight increased [Not Recovered/Not Resolved]
  - Fatigue [Unknown]
  - Injection site nodule [Recovering/Resolving]
  - Abdominal pain [Unknown]

NARRATIVE: CASE EVENT DATE: 2008
